FAERS Safety Report 7056259-8 (Version None)
Quarter: 2010Q4

REPORT INFORMATION
  Report Type: 
  Country: None (occurrence: None)
  Receive Date: 20101021
  Receipt Date: 20101008
  Transmission Date: 20110411
  Serious: Yes (Congenital Anomaly, Other)
  Sender: FDA-Public Use
  Company Number: NL-ELI_LILLY_AND_COMPANY-NL201008008470

PATIENT

DRUGS (7)
  1. PROZAC [Suspect]
     Route: 064
  2. METAMUCIL-2 [Concomitant]
     Route: 064
  3. ZYPREXA [Concomitant]
     Route: 064
  4. PROPRANOLOL [Concomitant]
     Route: 064
  5. LACTULOSE [Concomitant]
     Route: 064
  6. OMEPRAZOLE [Concomitant]
     Route: 064
  7. IMPORTAL [Concomitant]

REACTIONS (4)
  - CLEFT PALATE [None]
  - CONGENITAL ANOMALY [None]
  - DRUG EXPOSURE DURING PREGNANCY [None]
  - MATERNAL DRUGS AFFECTING FOETUS [None]
